FAERS Safety Report 15767625 (Version 1)
Quarter: 2018Q4

REPORT INFORMATION
  Report Type: Spontaneous
  Country: CA (occurrence: CA)
  Receive Date: 20181227
  Receipt Date: 20181227
  Transmission Date: 20190205
  Serious: Yes (Life-Threatening, Hospitalization)
  Sender: FDA-Public Use
  Company Number: CA-JNJFOC-20181232259

PATIENT
  Age: 88 Year
  Sex: Female
  Weight: 53 kg

DRUGS (6)
  1. LIPITOR [Concomitant]
     Active Substance: ATORVASTATIN CALCIUM
     Route: 065
  2. ENALAPRIL [Concomitant]
     Active Substance: ENALAPRIL
     Route: 065
  3. XARELTO [Suspect]
     Active Substance: RIVAROXABAN
     Indication: ATRIAL FLUTTER
     Route: 048
  4. CHONDROITIN [Concomitant]
     Active Substance: CHONDROITIN
     Route: 065
  5. ATENOLOL. [Concomitant]
     Active Substance: ATENOLOL
     Route: 065
  6. ASCORBIC ACID. [Concomitant]
     Active Substance: ASCORBIC ACID
     Route: 065

REACTIONS (2)
  - Cerebral haemorrhage [Recovered/Resolved]
  - Intracranial aneurysm [Recovered/Resolved]
